FAERS Safety Report 21995250 (Version 1)
Quarter: 2023Q1

REPORT INFORMATION
  Report Type: Spontaneous
  Country: US (occurrence: None)
  Receive Date: 20230214
  Receipt Date: 20230214
  Transmission Date: 20230417
  Serious: No
  Sender: FDA-Public Use
  Company Number: None

PATIENT
  Sex: Female
  Weight: 85.73 kg

DRUGS (5)
  1. IBRANCE [Suspect]
     Active Substance: PALBOCICLIB
     Indication: Breast cancer female
     Dosage: OTHER FREQUENCY : DAILY X 21 DAYS;?
     Route: 048
     Dates: start: 20221126
  2. VENLAFAXINE [Concomitant]
     Active Substance: VENLAFAXINE HYDROCHLORIDE
  3. FASLODEX [Concomitant]
     Active Substance: FULVESTRANT
  4. XGEVA [Concomitant]
     Active Substance: DENOSUMAB
  5. OXYBUTYNIN [Concomitant]
     Active Substance: OXYBUTYNIN

REACTIONS (3)
  - Fatigue [None]
  - Headache [None]
  - Pain [None]
